FAERS Safety Report 8833435 (Version 1)
Quarter: 2012Q4

REPORT INFORMATION
  Report Type: 
  Country: US (occurrence: US)
  Receive Date: 20121010
  Receipt Date: 20121010
  Transmission Date: 20130627
  Serious: No
  Sender: FDA-Public Use
  Company Number: US-VERTEX PHARMACEUTICAL INC.-2012-022019

PATIENT
  Age: 60 Year
  Sex: Male

DRUGS (2)
  1. KALYDECO [Suspect]
     Indication: CYSTIC FIBROSIS
     Dosage: UNK UNK, bid
  2. KALYDECO [Suspect]
     Dosage: UNK

REACTIONS (1)
  - Dry mouth [Recovered/Resolved]
